FAERS Safety Report 24583823 (Version 1)
Quarter: 2024Q4

REPORT INFORMATION
  Report Type: Report from Study
  Country: ZA (occurrence: ZA)
  Receive Date: 20241106
  Receipt Date: 20241106
  Transmission Date: 20250115
  Serious: Yes (Other)
  Sender: ABBVIE
  Company Number: ZA-ABBOTT-2024A-1390949

PATIENT
  Age: 78 Year
  Sex: Male

DRUGS (17)
  1. FENOFIBRATE [Suspect]
     Active Substance: FENOFIBRATE
     Indication: Blood cholesterol
     Dosage: 200 MG TAKE ONE CAPSULE DAILY
     Route: 048
  2. AMMONIUM CHLORIDE\DIPHENHYDRAMINE\ETOFYLLINE\SODIUM CITRATE\THEOPHYLLI [Concomitant]
     Active Substance: AMMONIUM CHLORIDE\DIPHENHYDRAMINE\ETOFYLLINE\SODIUM CITRATE\THEOPHYLLINE
     Indication: Product used for unknown indication
     Dosage: TAKE 10ML FOUR TIMES A DAY FOR FIVE DAYS
     Route: 048
  3. Venteze [Concomitant]
     Indication: Bronchospasm
     Dosage: 2 MG TAKE ONE TABLET THREE TIMES A DAY
     Route: 048
  4. BISOPROLOL FUMARATE [Concomitant]
     Active Substance: BISOPROLOL FUMARATE
     Indication: Hypertension
     Dosage: 5 MG TAKE ONE TABLET DAILY
     Route: 048
  5. ZOLPIDEM TARTRATE [Concomitant]
     Active Substance: ZOLPIDEM TARTRATE
     Indication: Sleep disorder
     Dosage: 10 MG TAKE ONE TABLET AT NIGHT
     Route: 048
  6. NEPIZEL [Concomitant]
     Indication: Dementia Alzheimer^s type
     Dosage: 10 MG TAKE ONE TABLET AT NIGHT
     Route: 048
  7. CITALOPRAM HYDROBROMIDE [Concomitant]
     Active Substance: CITALOPRAM HYDROBROMIDE
     Indication: Psychiatric care
     Dosage: 20 MG TAKE ONE TABLET AT NIGHT
     Route: 048
  8. Zoxil [Concomitant]
     Indication: Product used for unknown indication
     Dosage: 500 MG TAKE ONE CAPSULE THREE TIMES A DAY
     Route: 048
  9. QUETIAPINE [Concomitant]
     Active Substance: QUETIAPINE
     Indication: Mental disorder
     Dosage: 25 MG TAKE TWO TABLETS AT NIGHT
     Route: 048
  10. LEVALBUTEROL HYDROCHLORIDE [Concomitant]
     Active Substance: LEVALBUTEROL HYDROCHLORIDE
     Indication: Asthma
     Dosage: NEBULISE WITH ONE NEBULE 6 HOURLY FOR 2 DAYS
     Route: 065
  11. ACETYLCYSTEINE [Concomitant]
     Active Substance: ACETYLCYSTEINE
     Indication: Product used for unknown indication
     Dosage: 200 MG TAKE ONE DISSOLVED IN WATER TWICE A DAY
     Route: 048
  12. PROBIFLORA RX INTESTINAL FLORA CARE [Concomitant]
     Indication: Product used for unknown indication
     Dosage: TAKE ONE CAPSULE DAILY
     Route: 048
  13. ECOTRIN [Concomitant]
     Active Substance: ASPIRIN
     Indication: Blood disorder prophylaxis
     Dosage: 81 MG TAKE ONE TABLET DAILY
     Route: 048
  14. MEMANTINE HYDROCHLORIDE [Concomitant]
     Active Substance: MEMANTINE HYDROCHLORIDE
     Indication: Dementia Alzheimer^s type
     Dosage: 10 MG TAKE HALF A TABLET DAILY FOR 7 DAYS THEN TAKE ONE TABLET DAILY
     Route: 048
  15. METFORMIN HYDROCHLORIDE [Concomitant]
     Active Substance: METFORMIN HYDROCHLORIDE
     Indication: Diabetes mellitus
     Dosage: 500 MG TAKE TWO TABLETS DAILY
     Route: 048
  16. ROSUVASTATIN CALCIUM [Concomitant]
     Active Substance: ROSUVASTATIN CALCIUM
     Indication: Blood cholesterol
     Dosage: 20 MG TAKE ONE TABLET AT NIGHT
     Route: 048
  17. RISPERIDONE [Concomitant]
     Active Substance: RISPERIDONE
     Indication: Psychiatric care
     Dosage: 0.5 MG TAKE ONE TABLET DAILY
     Route: 048

REACTIONS (1)
  - Dementia [Unknown]
